FAERS Safety Report 23657122 (Version 1)
Quarter: 2024Q1

REPORT INFORMATION
  Report Type: Other
  Country: US (occurrence: None)
  Receive Date: 20240321
  Receipt Date: 20240321
  Transmission Date: 20240410
  Serious: Yes (Death)
  Sender: FDA-Public Use
  Company Number: US-ROCHE-3525827

PATIENT
  Age: 42 Year
  Sex: Female
  Weight: 78.996 kg

DRUGS (4)
  1. AVASTIN [Suspect]
     Active Substance: BEVACIZUMAB
     Indication: Malignant nervous system neoplasm
     Dosage: 22/AUG/2023 (MOST RECENT DOSE)
     Route: 042
     Dates: start: 20210128, end: 20240219
  2. COMPAZINE [Concomitant]
     Active Substance: PROCHLORPERAZINE MALEATE
  3. FAMOTIDINE [Concomitant]
     Active Substance: FAMOTIDINE
  4. LORAZEPAM [Concomitant]
     Active Substance: LORAZEPAM

REACTIONS (2)
  - Death [Fatal]
  - Off label use [Unknown]

NARRATIVE: CASE EVENT DATE: 20210128
